FAERS Safety Report 13456008 (Version 1)
Quarter: 2017Q2

REPORT INFORMATION
  Report Type: Report from Study
  Country: PL (occurrence: PL)
  Receive Date: 20170418
  Receipt Date: 20170418
  Transmission Date: 20170830
  Serious: Yes (Death, Life-Threatening, Other)
  Sender: FDA-Public Use
  Company Number: PL-ACTELION-A-NJ2017-152687

PATIENT
  Age: 74 Year
  Sex: Female

DRUGS (2)
  1. SILDENAFIL. [Concomitant]
     Active Substance: SILDENAFIL
     Dosage: UNK
     Dates: start: 2012, end: 20170408
  2. VENTAVIS [Suspect]
     Active Substance: ILOPROST
     Indication: PULMONARY ARTERIAL HYPERTENSION
     Dosage: 5 MCG, 8ID
     Route: 055
     Dates: start: 201203, end: 20170408

REACTIONS (6)
  - Dyspnoea at rest [Unknown]
  - Death [Fatal]
  - Decreased appetite [Unknown]
  - Exercise tolerance decreased [Unknown]
  - Asthenia [Unknown]
  - Impaired self-care [Unknown]

NARRATIVE: CASE EVENT DATE: 20170407
